FAERS Safety Report 12957699 (Version 3)
Quarter: 2017Q2

REPORT INFORMATION
  Report Type: Report from Study
  Country: US (occurrence: US)
  Receive Date: 20161118
  Receipt Date: 20170418
  Transmission Date: 20170830
  Serious: Yes (Hospitalization)
  Sender: FDA-Public Use
  Company Number: US-ACTELION-A-US2016-143869

PATIENT
  Age: 44 Year
  Sex: Female
  Weight: 101.13 kg

DRUGS (9)
  1. FUROSEMIDE. [Concomitant]
     Active Substance: FUROSEMIDE
     Dosage: 40 MG, UNK
     Dates: start: 2015
  2. SYMBICORT [Concomitant]
     Active Substance: BUDESONIDE\FORMOTEROL FUMARATE DIHYDRATE
     Dosage: 2 PUFF, QD
  3. CARVEDILOL. [Concomitant]
     Active Substance: CARVEDILOL
     Dosage: 20 MG, UNK
     Dates: start: 2015
  4. OPSUMIT [Suspect]
     Active Substance: MACITENTAN
     Indication: PULMONARY ARTERIAL HYPERTENSION
     Dosage: 10 MG, QD
     Route: 048
     Dates: start: 20160609
  5. LISINOPRIL. [Concomitant]
     Active Substance: LISINOPRIL
     Dosage: 10 MG, UNK
     Dates: start: 2015
  6. SIMVASTATIN. [Concomitant]
     Active Substance: SIMVASTATIN
     Dosage: 20 MG, QD
     Dates: start: 2015
  7. METOLAZONE. [Concomitant]
     Active Substance: METOLAZONE
     Dosage: 20 MG, PRN
     Dates: start: 2016
  8. ADCIRCA [Concomitant]
     Active Substance: TADALAFIL
     Dosage: UNK
     Dates: start: 201701
  9. LEVEMIR [Suspect]
     Active Substance: INSULIN DETEMIR
     Indication: PRODUCT USED FOR UNKNOWN INDICATION
     Dosage: UNK UNK, QD
     Route: 065
     Dates: start: 201701

REACTIONS (22)
  - Epistaxis [Unknown]
  - Blood glucose decreased [Unknown]
  - Muscular weakness [Unknown]
  - Peripheral swelling [Unknown]
  - Pulmonary oedema [Unknown]
  - Pneumonia [Unknown]
  - Unevaluable event [Unknown]
  - Chest pain [Unknown]
  - Presyncope [Unknown]
  - Myalgia [Unknown]
  - Blood creatinine abnormal [Not Recovered/Not Resolved]
  - Palpitations [Unknown]
  - Oedema [Unknown]
  - Back pain [Unknown]
  - Vitamin D deficiency [Unknown]
  - Oxygen saturation decreased [Unknown]
  - Syncope [Unknown]
  - Musculoskeletal pain [Unknown]
  - Dizziness [Unknown]
  - Abdominal distension [Unknown]
  - Anaemia [Not Recovered/Not Resolved]
  - Urinary tract infection [Not Recovered/Not Resolved]

NARRATIVE: CASE EVENT DATE: 20161105
